FAERS Safety Report 22372893 (Version 1)
Quarter: 2023Q2

REPORT INFORMATION
  Report Type: Spontaneous
  Country: US (occurrence: None)
  Receive Date: 20230525
  Receipt Date: 20230525
  Transmission Date: 20230721
  Serious: No
  Sender: FDA-Public Use
  Company Number: None

PATIENT
  Age: 82 Year
  Sex: Female
  Weight: 49.9 kg

DRUGS (4)
  1. POMALYST [Suspect]
     Active Substance: POMALIDOMIDE
     Indication: Plasma cell myeloma
     Dosage: FREQUENCY : DAILY;?
     Route: 048
     Dates: start: 20221018
  2. ACYCLOVIR [Concomitant]
     Active Substance: ACYCLOVIR
     Dates: start: 20220708
  3. ASPIRIN [Concomitant]
     Active Substance: ASPIRIN
     Dates: start: 20220708
  4. KLOR-CON [Concomitant]
     Active Substance: POTASSIUM CHLORIDE
     Dates: start: 20220708

REACTIONS (1)
  - Oedema [None]

NARRATIVE: CASE EVENT DATE: 20230427
